FAERS Safety Report 6535166-0 (Version None)
Quarter: 2010Q1

REPORT INFORMATION
  Report Type: 
  Country: None (occurrence: None)
  Receive Date: 20100113
  Receipt Date: 20090323
  Transmission Date: 20100710
  Serious: No
  Sender: FDA-Public Use
  Company Number: A0826500A

PATIENT
  Age: 55 Year
  Sex: Female

DRUGS (1)
  1. SOLAGE [Suspect]
     Indication: LENTIGO
     Route: 061
     Dates: start: 20090307, end: 20090312

REACTIONS (1)
  - APPLICATION SITE PAIN [None]
